FAERS Safety Report 13150585 (Version 1)
Quarter: 2017Q1

REPORT INFORMATION
  Report Type: Spontaneous
  Country: SE (occurrence: SE)
  Receive Date: 20170125
  Receipt Date: 20170125
  Transmission Date: 20170428
  Serious: Yes (Hospitalization)
  Sender: FDA-Public Use
  Company Number: SE-TEVA-730533ACC

PATIENT
  Age: 68 Year
  Sex: Female

DRUGS (1)
  1. NEOTIGASONE [Suspect]
     Active Substance: ACITRETIN
     Indication: PSORIASIS

REACTIONS (3)
  - Hepatic necrosis [Unknown]
  - Oesophageal perforation [Unknown]
  - Sepsis [Unknown]

NARRATIVE: CASE EVENT DATE: 2016
